FAERS Safety Report 10202595 (Version 1)
Quarter: 2014Q2

REPORT INFORMATION
  Report Type: Spontaneous
  Country: CH (occurrence: CH)
  Receive Date: 20140528
  Receipt Date: 20140528
  Transmission Date: 20141212
  Serious: Yes (Hospitalization)
  Sender: FDA-Public Use
  Company Number: CH-BAYER-2014-076185

PATIENT
  Age: 17 Year
  Sex: Female
  Weight: 52 kg

DRUGS (1)
  1. ASPIRIN [Suspect]
     Dosage: 250-300 TABLETS
     Route: 048

REACTIONS (10)
  - Intentional overdose [Recovered/Resolved]
  - Suicide attempt [None]
  - Toxicity to various agents [Recovered/Resolved]
  - Metabolic acidosis [Recovered/Resolved]
  - Respiratory alkalosis [Recovered/Resolved]
  - Vomiting [Recovered/Resolved]
  - Tinnitus [Recovered/Resolved]
  - Laboratory test interference [None]
  - Blood chloride increased [None]
  - Anion gap decreased [None]
